FAERS Safety Report 6924029 (Version 13)
Quarter: 2017Q1

REPORT INFORMATION
  Report Type: Report from Study
  Country: CA (occurrence: CA)
  Receive Date: 20090227
  Receipt Date: 20170125
  Transmission Date: 20170429
  Serious: Yes (Other)
  Sender: FDA-Public Use
  Company Number: PHHY2009CA06213

PATIENT
  Age: 63 Year
  Sex: Female

DRUGS (9)
  1. ZOLOFT [Concomitant]
     Active Substance: SERTRALINE HYDROCHLORIDE
     Indication: PRODUCT USED FOR UNKNOWN INDICATION
     Dosage: 50 MG, QD
     Route: 065
  2. CORTEF [Concomitant]
     Active Substance: HYDROCORTISONE
     Indication: PRODUCT USED FOR UNKNOWN INDICATION
     Dosage: 10 MG, BID
     Route: 048
  3. SANDOSTATIN LAR DEPOT [Suspect]
     Active Substance: OCTREOTIDE ACETATE
     Dosage: 30 MG, QMO (ONCE A MONTH)
     Route: 030
  4. PREMARIN [Concomitant]
     Active Substance: ESTROGENS, CONJUGATED
     Indication: PRODUCT USED FOR UNKNOWN INDICATION
     Dosage: 3 MG, QD
     Route: 048
  5. COVERSYL PLUS [Concomitant]
     Active Substance: INDAPAMIDE\PERINDOPRIL
     Indication: PRODUCT USED FOR UNKNOWN INDICATION
     Dosage: 1 DF, QD
     Route: 048
  6. ZOCOR [Concomitant]
     Active Substance: SIMVASTATIN
     Indication: PRODUCT USED FOR UNKNOWN INDICATION
     Dosage: 20 MG, QD
     Route: 048
  7. SANDOSTATIN LAR DEPOT [Suspect]
     Active Substance: OCTREOTIDE ACETATE
     Indication: ACROMEGALY
     Dosage: 30 MG, EVERY 4 WEEKS (QMO)
     Route: 030
     Dates: start: 20050526
  8. SANDOSTATIN LAR DEPOT [Suspect]
     Active Substance: OCTREOTIDE ACETATE
     Dosage: 30 MG, QMO (EVERY 4 WEEKS)
     Route: 030
     Dates: start: 20160613
  9. LUMIGAN [Concomitant]
     Active Substance: BIMATOPROST
     Indication: PRODUCT USED FOR UNKNOWN INDICATION
     Dosage: 1 DRP, QD
     Route: 047

REACTIONS (21)
  - Fall [Unknown]
  - Mobility decreased [Unknown]
  - Myalgia [Unknown]
  - Facial bones fracture [Unknown]
  - Cerebral palsy [Unknown]
  - Panic attack [Unknown]
  - Blood pressure increased [Unknown]
  - Crying [Unknown]
  - Hand fracture [Unknown]
  - Insomnia [Unknown]
  - Diarrhoea [Unknown]
  - Balance disorder [Unknown]
  - Contusion [Unknown]
  - Feelings of worthlessness [Unknown]
  - Loss of consciousness [Unknown]
  - Dysstasia [Unknown]
  - Memory impairment [Unknown]
  - Epistaxis [Unknown]
  - Vomiting [Unknown]
  - Dyspnoea [Unknown]
  - Malaise [Unknown]

NARRATIVE: CASE EVENT DATE: 20090214
